FAERS Safety Report 23761990 (Version 2)
Quarter: 2024Q2

REPORT INFORMATION
  Report Type: Spontaneous
  Country: US (occurrence: US)
  Receive Date: 20240419
  Receipt Date: 20240429
  Transmission Date: 20240716
  Serious: Yes (Hospitalization)
  Sender: FDA-Public Use
  Company Number: US-BRISTOL-MYERS SQUIBB COMPANY-2024-058689

PATIENT
  Age: 71 Year
  Sex: Male

DRUGS (2)
  1. OPDIVO [Suspect]
     Active Substance: NIVOLUMAB
     Indication: Neoplasm malignant
     Dosage: DOSE : OPDIVO: 480 MG OPDIVO: EVERY 4 WEEKS
     Route: 042
     Dates: start: 20240102
  2. YERVOY [Suspect]
     Active Substance: IPILIMUMAB
     Indication: Neoplasm malignant
     Dosage: YERVOY: 250 MG;     ?YERVOY: EVERY 21 DAYS?STRENGTH: YERVOY: 200, 50 MG; VIALS
     Route: 042
     Dates: start: 20240123

REACTIONS (3)
  - Abdominal pain [Unknown]
  - Off label use [Unknown]
  - Liver function test abnormal [Unknown]
